FAERS Safety Report 13954297 (Version 1)
Quarter: 2017Q3

REPORT INFORMATION
  Report Type: Spontaneous
  Country: US (occurrence: None)
  Receive Date: 20170910
  Receipt Date: 20170910
  Transmission Date: 20171128
  Serious: Yes (Hospitalization)
  Sender: FDA-Public Use
  Company Number: None

PATIENT
  Age: 68 Year
  Sex: Male
  Weight: 61 kg

DRUGS (1)
  1. MYCOPHENOLATE MOFETIL. [Suspect]
     Active Substance: MYCOPHENOLATE MOFETIL
     Indication: POLYMYOSITIS
     Route: 048
     Dates: start: 20161017, end: 20170428

REACTIONS (2)
  - Anaemia [None]
  - Pain in extremity [None]

NARRATIVE: CASE EVENT DATE: 20170428
